FAERS Safety Report 12859253 (Version 1)
Quarter: 2016Q4

REPORT INFORMATION
  Report Type: Spontaneous
  Country: US (occurrence: US)
  Receive Date: 20161018
  Receipt Date: 20161018
  Transmission Date: 20170207
  Serious: No
  Sender: FDA-Public Use
  Company Number: US-009507513-1610USA005678

PATIENT
  Age: 68 Year
  Sex: Female

DRUGS (3)
  1. CAPECITABINE. [Concomitant]
     Active Substance: CAPECITABINE
     Indication: CARCINOID TUMOUR PULMONARY
     Dosage: UNK
     Dates: start: 2006
  2. DOXIL [Concomitant]
     Active Substance: DOXORUBICIN HYDROCHLORIDE
     Indication: CARCINOID TUMOUR PULMONARY
     Dosage: UNK
     Dates: start: 2006
  3. TEMODAR [Suspect]
     Active Substance: TEMOZOLOMIDE
     Indication: CARCINOID TUMOUR PULMONARY
     Dosage: UNK
     Dates: start: 2006

REACTIONS (2)
  - Drug intolerance [Unknown]
  - Off label use [Unknown]

NARRATIVE: CASE EVENT DATE: 2006
